FAERS Safety Report 6236967-9 (Version None)
Quarter: 2009Q2

REPORT INFORMATION
  Report Type: 
  Country: None (occurrence: None)
  Receive Date: 20090619
  Receipt Date: 20090302
  Transmission Date: 20091009
  Serious: No
  Sender: FDA-Public Use
  Company Number: US-ASTRAZENECA-2009UW05689

PATIENT
  Age: 56 Year
  Sex: Female
  Weight: 79.4 kg

DRUGS (5)
  1. SYMBICORT [Suspect]
     Indication: ASTHMA
     Dosage: 160 UG
     Route: 055
     Dates: start: 20090221, end: 20090302
  2. XANAX [Concomitant]
  3. SINGULAIR [Concomitant]
  4. VITAMIN B-12 [Concomitant]
  5. AMOXICILLIN [Concomitant]

REACTIONS (4)
  - BLOOD PRESSURE INCREASED [None]
  - FEELING ABNORMAL [None]
  - HEADACHE [None]
  - HEART RATE INCREASED [None]
